FAERS Safety Report 6635709-2 (Version None)
Quarter: 2010Q1

REPORT INFORMATION
  Report Type: 
  Country: None (occurrence: None)
  Receive Date: 20100312
  Receipt Date: 20100312
  Transmission Date: 20100710
  Serious: Yes (Life-Threatening, Hospitalization)
  Sender: FDA-Public Use
  Company Number: None

PATIENT
  Age: 81 Year
  Sex: Male
  Weight: 64.41 kg

DRUGS (1)
  1. HEPARIN SODIUM 1,000 UNITS IN SODIUM CHLORIDE 0.9% [Suspect]
     Indication: DEEP VEIN THROMBOSIS
     Dosage: 23 ML PER HOUR PO
     Route: 048
     Dates: start: 20091015, end: 20091016

REACTIONS (1)
  - HEPARIN-INDUCED THROMBOCYTOPENIA [None]
